FAERS Safety Report 11751783 (Version 1)
Quarter: 2015Q4

REPORT INFORMATION
  Report Type: Report from Study
  Country: CA (occurrence: CA)
  Receive Date: 20151118
  Receipt Date: 20151118
  Transmission Date: 20160304
  Serious: Yes (Other)
  Sender: FDA-Public Use
  Company Number: CA-JNJFOC-20151017211

PATIENT
  Age: 56 Year
  Sex: Male
  Weight: 108 kg

DRUGS (4)
  1. TYLENOL WITH CODEINE [Suspect]
     Active Substance: ACETAMINOPHEN\CODEINE PHOSPHATE
     Indication: PAIN
     Route: 065
     Dates: start: 20151019
  2. REMICADE [Suspect]
     Active Substance: INFLIXIMAB
     Indication: COLITIS ULCERATIVE
     Route: 042
     Dates: start: 2006
  3. REMICADE [Suspect]
     Active Substance: INFLIXIMAB
     Indication: COLITIS ULCERATIVE
     Route: 042
     Dates: start: 20080507
  4. SALOFALK [Concomitant]
     Active Substance: MESALAMINE
     Route: 048

REACTIONS (7)
  - Osteoarthritis [Unknown]
  - Hepatomegaly [Unknown]
  - Constipation [Unknown]
  - Fibrosis [Unknown]
  - Deep vein thrombosis [Not Recovered/Not Resolved]
  - Gallbladder polyp [Unknown]
  - Overweight [Unknown]

NARRATIVE: CASE EVENT DATE: 20151019
